FAERS Safety Report 7108776-X (Version None)
Quarter: 2010Q4

REPORT INFORMATION
  Report Type: 
  Country: None (occurrence: None)
  Receive Date: 20101117
  Receipt Date: 20101104
  Transmission Date: 20110411
  Serious: Yes (Death)
  Sender: FDA-Public Use
  Company Number: CA-ACTELION-A-US2010-41356

PATIENT

DRUGS (1)
  1. TRACLEER [Suspect]
     Dosage: UNK
     Route: 048
     Dates: start: 20070701, end: 20101030

REACTIONS (1)
  - DEATH [None]
